FAERS Safety Report 15804874 (Version 1)
Quarter: 2019Q1

REPORT INFORMATION
  Report Type: Spontaneous
  Country: GB (occurrence: GB)
  Receive Date: 20190109
  Receipt Date: 20190109
  Transmission Date: 20190417
  Serious: Yes (Other)
  Sender: FDA-Public Use
  Company Number: GB-009507513-1901GBR001937

PATIENT
  Age: 79 Year
  Sex: Male
  Weight: 66 kg

DRUGS (1)
  1. DAPTOMYCIN. [Suspect]
     Active Substance: DAPTOMYCIN
     Indication: ENDOCARDITIS ENTEROCOCCAL
     Dosage: 700 MILLIGRAM, QOD
     Route: 042
     Dates: start: 20181123, end: 20181215

REACTIONS (4)
  - Pyrexia [Unknown]
  - Eosinophilic pneumonia [Recovering/Resolving]
  - Confusional state [Unknown]
  - Lung infiltration [Unknown]

NARRATIVE: CASE EVENT DATE: 20181213
